FAERS Safety Report 9501114 (Version 1)
Quarter: 2013Q3

REPORT INFORMATION
  Report Type: Spontaneous
  Country: US (occurrence: US)
  Receive Date: 20130905
  Receipt Date: 20130905
  Transmission Date: 20140515
  Serious: Yes (Hospitalization)
  Sender: FDA-Public Use
  Company Number: US-UCBSA-096289

PATIENT
  Age: 24 Year
  Sex: Male

DRUGS (2)
  1. KEPPRA [Suspect]
     Dosage: 1125 MG MORNING AND 750MG EVENING(TDD-1875MG)
     Route: 048
     Dates: start: 2003, end: 2013
  2. LAMICTAL [Suspect]
     Indication: CONVULSION
     Route: 048
     Dates: start: 2008

REACTIONS (2)
  - Convulsion [Recovered/Resolved]
  - Weight increased [Unknown]
